FAERS Safety Report 20803721 (Version 3)
Quarter: 2022Q4

REPORT INFORMATION
  Report Type: Report from Study
  Country: KR (occurrence: KR)
  Receive Date: 20220509
  Receipt Date: 20221223
  Transmission Date: 20230113
  Serious: Yes (Hospitalization, Other)
  Sender: FDA-Public Use
  Company Number: KR-GLAXOSMITHKLINE-KR2022GSK075171

PATIENT

DRUGS (9)
  1. FLUTICASONE FUROATE\UMECLIDINIUM BROMIDE\VILANTEROL TRIFENATATE [Suspect]
     Active Substance: FLUTICASONE FUROATE\UMECLIDINIUM BROMIDE\VILANTEROL TRIFENATATE
     Indication: Chronic obstructive pulmonary disease
     Dosage: UNK, QD
     Route: 055
     Dates: start: 20220209, end: 20220504
  2. FLUTICASONE FUROATE\UMECLIDINIUM BROMIDE\VILANTEROL TRIFENATATE [Suspect]
     Active Substance: FLUTICASONE FUROATE\UMECLIDINIUM BROMIDE\VILANTEROL TRIFENATATE
     Dosage: UNK, QD
     Route: 055
     Dates: start: 20220627
  3. PRANLUKAST [Concomitant]
     Active Substance: PRANLUKAST
     Indication: Chronic obstructive pulmonary disease
     Dosage: 2 DF, SINGLE
     Route: 048
     Dates: start: 20170424
  4. DOXOFYLLINE [Concomitant]
     Active Substance: DOXOFYLLINE
     Indication: Chronic obstructive pulmonary disease
     Dosage: 400 MG, BID
     Route: 048
     Dates: start: 20170424
  5. CKD GLIATILIN [Concomitant]
     Indication: Vascular dementia
     Dosage: 1 DF, QD
     Route: 048
     Dates: start: 20210607, end: 20220331
  6. XARELTO [Concomitant]
     Active Substance: RIVAROXABAN
     Indication: Atrial fibrillation
     Dosage: 5 MG, SINGLE
     Route: 048
     Dates: start: 20200615, end: 20220904
  7. ESCITALOPRAM OXALATE [Concomitant]
     Active Substance: ESCITALOPRAM OXALATE
     Indication: Antidepressant therapy
     Dosage: 1 DF, BID
     Route: 048
     Dates: start: 20200330, end: 20220904
  8. LIPITOR [Concomitant]
     Active Substance: ATORVASTATIN CALCIUM
     Indication: Arteriosclerosis
     Dosage: 40 MG, QD
     Route: 048
     Dates: start: 20200330
  9. TRISONE [Concomitant]
     Indication: Antibiotic therapy
     Dosage: UNK
     Route: 042
     Dates: start: 20220504

REACTIONS (1)
  - Empyema [Recovered/Resolved]

NARRATIVE: CASE EVENT DATE: 20220427
